FAERS Safety Report 10050343 (Version 1)
Quarter: 2014Q2

REPORT INFORMATION
  Report Type: Spontaneous
  Country: US (occurrence: US)
  Receive Date: 20140401
  Receipt Date: 20140401
  Transmission Date: 20141212
  Serious: Yes (Other)
  Sender: FDA-Public Use
  Company Number: US-BAYER-2014-048114

PATIENT
  Age: 46 Year
  Sex: Female
  Weight: 70.3 kg

DRUGS (1)
  1. YAZ [Suspect]

REACTIONS (1)
  - Pulmonary embolism [None]
